FAERS Safety Report 13402416 (Version 4)
Quarter: 2017Q2

REPORT INFORMATION
  Report Type: Report from Study
  Country: MW (occurrence: MW)
  Receive Date: 20170404
  Receipt Date: 20170428
  Transmission Date: 20170830
  Serious: Yes (Death, Life-Threatening, Hospitalization, Other)
  Sender: FDA-Public Use
  Company Number: MW-GILEAD-2017-0264667

PATIENT
  Age: 51 Year
  Sex: Male

DRUGS (3)
  1. EFAVIRENZ/EMTRICITABINE/TENOFOVIR DISOPROXIL FUMARATE [Suspect]
     Active Substance: EFAVIRENZ\EMTRICITABINE\TENOFOVIR DISOPROXIL FUMARATE
     Indication: ACQUIRED IMMUNODEFICIENCY SYNDROME
     Dosage: 1 DF, ONCE
     Route: 048
     Dates: start: 20160816, end: 20170312
  2. TRAMADOL HYDROCHLORIDE. [Concomitant]
     Active Substance: TRAMADOL HYDROCHLORIDE
     Indication: PAIN
     Dosage: UNK, BID
     Route: 048
     Dates: end: 20170311
  3. PACLITAXEL. [Suspect]
     Active Substance: PACLITAXEL
     Indication: KAPOSI^S SARCOMA AIDS RELATED
     Dosage: 160 MG, Q3WK
     Route: 042
     Dates: start: 20160817, end: 20161221

REACTIONS (4)
  - Pneumonia bacterial [Fatal]
  - Malaria [Fatal]
  - Renal failure [Fatal]
  - Neutropenia [Fatal]

NARRATIVE: CASE EVENT DATE: 20170317
